FAERS Safety Report 24038908 (Version 1)
Quarter: 2024Q3

REPORT INFORMATION
  Report Type: Spontaneous
  Country: PA (occurrence: PA)
  Receive Date: 20240702
  Receipt Date: 20240702
  Transmission Date: 20241017
  Serious: Yes (Hospitalization, Other)
  Sender: ROCHE
  Company Number: PA-ROCHE-3579841

PATIENT
  Age: 66 Year
  Sex: Female
  Weight: 63.5 kg

DRUGS (8)
  1. TOCILIZUMAB [Suspect]
     Active Substance: TOCILIZUMAB
     Indication: Arthritis
     Route: 065
     Dates: start: 20220905, end: 20230224
  2. FOLIC ACID [Concomitant]
     Active Substance: FOLIC ACID
     Indication: Arthritis
     Dosage: DOSE AND FREQUENCY WERE NOT REPORTED
  3. METHOTREXATE [Concomitant]
     Active Substance: METHOTREXATE
     Indication: Arthritis
     Dosage: DOSE AND FREQUENCY WERE NOT REPORTED
  4. RITUXIMAB [Concomitant]
     Active Substance: RITUXIMAB
     Indication: Arthritis
     Dosage: TWO DOSES UNTIL NOW
     Dates: start: 20230925
  5. RITUXIMAB [Concomitant]
     Active Substance: RITUXIMAB
     Dates: start: 20231009
  6. LEFLUNOMIDE [Concomitant]
     Active Substance: LEFLUNOMIDE
     Indication: Arthritis
     Dosage: DOSE AND FREQUENCY WERE NOT REPORTED
  7. VITAMIN B12 [Concomitant]
     Active Substance: CYANOCOBALAMIN
     Dosage: DOSE AND FREQUENCY WERE NOT REPORTED
  8. VITAMIN C [Concomitant]
     Active Substance: ASCORBIC ACID
     Dosage: DOSE AND FREQUENCY WERE NOT REPORTED

REACTIONS (8)
  - Diverticulitis [Recovered/Resolved]
  - Diverticular perforation [Recovered/Resolved]
  - Peritonitis [Unknown]
  - Appendix disorder [Unknown]
  - Arthritis [Unknown]
  - Depression [Unknown]
  - Pulmonary fibrosis [Unknown]
  - Hernia [Unknown]
